FAERS Safety Report 13382512 (Version 2)
Quarter: 2017Q1

REPORT INFORMATION
  Report Type: Report from Study
  Country: US (occurrence: US)
  Receive Date: 20170329
  Receipt Date: 20170331
  Transmission Date: 20170429
  Serious: Yes (Other)
  Sender: FDA-Public Use
  Company Number: PHEH2017US008101

PATIENT
  Sex: Female

DRUGS (1)
  1. LETROZOLE. [Suspect]
     Active Substance: LETROZOLE
     Indication: BREAST CANCER
     Dosage: UNK
     Route: 065
     Dates: start: 201601

REACTIONS (6)
  - Brain injury [Unknown]
  - Movement disorder [Unknown]
  - Balance disorder [Unknown]
  - Pain [Unknown]
  - Abasia [Unknown]
  - Therapy non-responder [Unknown]
